FAERS Safety Report 5462201-3 (Version None)
Quarter: 2007Q3

REPORT INFORMATION
  Report Type: 
  Country: None (occurrence: None)
  Receive Date: 20070920
  Receipt Date: 20070522
  Transmission Date: 20080115
  Serious: No
  Sender: FDA-Public Use
  Company Number: A0652100A

PATIENT
  Age: 62 Year
  Sex: Female

DRUGS (1)
  1. ABREVA [Suspect]

REACTIONS (6)
  - APPLICATION SITE SWELLING [None]
  - BURNING SENSATION [None]
  - HYPERSENSITIVITY [None]
  - ORAL HERPES [None]
  - PIGMENTATION LIP [None]
  - SCAR [None]
